FAERS Safety Report 4991299-1 (Version None)
Quarter: 2006Q2

REPORT INFORMATION
  Report Type: 
  Country: None (occurrence: None)
  Receive Date: 20060428
  Receipt Date: 20060417
  Transmission Date: 20061013
  Serious: Yes (Other)
  Sender: FDA-Public Use
  Company Number: 2006023749

PATIENT
  Age: 77 Year
  Sex: Female
  Weight: 62.5964 kg

DRUGS (3)
  1. DETROL LA [Suspect]
     Indication: POLLAKIURIA
     Dosage: 2 MG, 1 IN 1 D, ORAL
     Route: 048
     Dates: start: 20040101
  2. ARICEPT [Suspect]
     Indication: DEMENTIA ALZHEIMER'S TYPE
     Dates: start: 20060101
  3. TYLENOL PM (DIPHENHYDRAMINE, PARACETAMOL) [Suspect]
     Indication: SLEEP DISORDER

REACTIONS (8)
  - BODY HEIGHT DECREASED [None]
  - DEMENTIA ALZHEIMER'S TYPE [None]
  - DIARRHOEA [None]
  - DYSENTERY [None]
  - MIDDLE INSOMNIA [None]
  - OSTEOPOROSIS [None]
  - SLEEP DISORDER [None]
  - THERAPY NON-RESPONDER [None]
